FAERS Safety Report 8593085-2 (Version None)
Quarter: 2012Q3

REPORT INFORMATION
  Report Type: 
  Country: None (occurrence: None)
  Receive Date: 20120814
  Receipt Date: 20120810
  Transmission Date: 20120928
  Serious: Yes (Other)
  Sender: FDA-Public Use
  Company Number: DE-GLAXOSMITHKLINE-D0076696A

PATIENT

DRUGS (1)
  1. VOTRIENT [Suspect]
     Route: 048

REACTIONS (2)
  - CHEST PAIN [None]
  - METASTASES TO BONE [None]
